FAERS Safety Report 15075258 (Version 1)
Quarter: 2018Q2

REPORT INFORMATION
  Report Type: Spontaneous
  Country: US (occurrence: US)
  Receive Date: 20180627
  Receipt Date: 20180627
  Transmission Date: 20180711
  Serious: No
  Sender: FDA-Public Use
  Company Number: US-SAOL THERAPEUTICS-2018SAO00068

PATIENT
  Age: 46 Year
  Sex: Female

DRUGS (2)
  1. BACLOFEN. [Suspect]
     Active Substance: BACLOFEN
     Indication: MUSCLE SPASTICITY
  2. BACLOFEN. [Suspect]
     Active Substance: BACLOFEN
     Indication: MUSCLE SPASTICITY
     Dosage: 365 ?G, \DAY
     Route: 037

REACTIONS (3)
  - Faecaloma [Unknown]
  - Muscle spasticity [Unknown]
  - Device dislocation [Unknown]

NARRATIVE: CASE EVENT DATE: 20180112
